FAERS Safety Report 4342411-9 (Version None)
Quarter: 2004Q2

REPORT INFORMATION
  Report Type: 
  Country: None (occurrence: None)
  Receive Date: 20040413
  Receipt Date: 20040401
  Transmission Date: 20050107
  Serious: Yes (Hospitalization)
  Sender: FDA-Public Use
  Company Number: 2004AP02019

PATIENT
  Age: 80 Year
  Sex: Female

DRUGS (6)
  1. ATACAND [Suspect]
     Indication: HYPERTENSION
     Dosage: 4 MG DAILY PO
     Route: 048
     Dates: start: 20020901, end: 20030801
  2. ATACAND [Suspect]
     Indication: HYPERTENSION
     Dosage: 4 MG DAILY PO
     Route: 048
     Dates: start: 20040201, end: 20040310
  3. ATACAND [Suspect]
     Indication: HYPERTENSION
     Dosage: 6 MG DAILY PO
     Route: 048
     Dates: start: 20040311, end: 20040330
  4. ATACAND [Suspect]
     Indication: HYPERTENSION
     Dosage: 4 MG DAILY PO
     Route: 048
     Dates: start: 20040331
  5. ZOTON [Concomitant]
  6. INFLUENZA VACCINATION [Concomitant]

REACTIONS (13)
  - CIRCULATORY COLLAPSE [None]
  - DIZZINESS [None]
  - FALL [None]
  - FEELING ABNORMAL [None]
  - FLATULENCE [None]
  - FLUSHING [None]
  - JOINT INJURY [None]
  - MUSCLE DISORDER [None]
  - MUSCLE SPASMS [None]
  - PNEUMONIA [None]
  - POLLAKIURIA [None]
  - SOMNOLENCE [None]
  - VISUAL DISTURBANCE [None]
